FAERS Safety Report 5089528-1 (Version None)
Quarter: 2006Q3

REPORT INFORMATION
  Report Type: 
  Country: None (occurrence: None)
  Receive Date: 20060727
  Receipt Date: 20060608
  Transmission Date: 20061208
  Serious: Yes (Other)
  Sender: FDA-Public Use
  Company Number: 2006074189

PATIENT
  Sex: 0

DRUGS (2)
  1. LYRICA [Suspect]
     Indication: NEUROPATHY
     Dates: start: 20060101
  2. ALL OTHER THERAPEUTIC PRODUCTS (ALL OTHER THERAPEUTIC PRODUCTS) [Concomitant]

REACTIONS (2)
  - BALANCE DISORDER [None]
  - DIZZINESS [None]
